FAERS Safety Report 11643288 (Version 1)
Quarter: 2015Q4

REPORT INFORMATION
  Report Type: Spontaneous
  Country: RS (occurrence: RS)
  Receive Date: 20151020
  Receipt Date: 20151020
  Transmission Date: 20160304
  Serious: Yes (Death, Hospitalization)
  Sender: FDA-Public Use
  Company Number: PHHY2015RS134962

PATIENT
  Age: 54 Year
  Sex: Male

DRUGS (1)
  1. AFINITOR [Suspect]
     Active Substance: EVEROLIMUS
     Indication: METASTATIC RENAL CELL CARCINOMA
     Dosage: 10 MG, QD
     Route: 048
     Dates: start: 201411, end: 201509

REACTIONS (4)
  - Metastases to lung [Fatal]
  - Hepatic lesion [Unknown]
  - Malignant neoplasm progression [Fatal]
  - Respiratory failure [Unknown]

NARRATIVE: CASE EVENT DATE: 201509
